FAERS Safety Report 10159400 (Version 2)
Quarter: 2014Q2

REPORT INFORMATION
  Report Type: Spontaneous
  Country: FR (occurrence: None)
  Receive Date: 20140506
  Receipt Date: 20140507
  Transmission Date: 20141212
  Serious: Yes (Life-Threatening, Other)
  Sender: FDA-Public Use
  Company Number: AUR-APL-2014-05224

PATIENT
  Age: 69 Year
  Sex: Male

DRUGS (7)
  1. METFORMIN [Suspect]
     Indication: TYPE 2 DIABETES MELLITUS
     Route: 048
     Dates: start: 200804
  2. ALLOPURINOL [Suspect]
     Indication: HYPERURICAEMIA
     Route: 048
  3. COKENZEN [Suspect]
     Indication: HYPERTENSION
     Dates: start: 200707, end: 200904
  4. CORDARONE [Suspect]
     Indication: ATRIAL FIBRILLATION
     Route: 048
  5. PREVISCAN [Suspect]
     Indication: THROMBOSIS PROPHYLAXIS
     Route: 048
     Dates: start: 200310
  6. LEVOTHYROXINE [Suspect]
     Indication: THYROIDITIS
     Route: 048
     Dates: start: 2003
  7. APPROVEL (IRBESARTAN) [Concomitant]

REACTIONS (10)
  - Type 2 diabetes mellitus [None]
  - Metastasis [None]
  - Atrial fibrillation [None]
  - Thyroiditis [None]
  - Sternal fracture [None]
  - Hyperuricaemia [None]
  - Post procedural complication [None]
  - Disease recurrence [None]
  - Nodule [None]
  - Shock haemorrhagic [None]
